FAERS Safety Report 10044264 (Version 2)
Quarter: 2014Q1

REPORT INFORMATION
  Report Type: Spontaneous
  Country: SA (occurrence: SA)
  Receive Date: 20140328
  Receipt Date: 20140328
  Transmission Date: 20141002
  Serious: Yes (Other)
  Sender: FDA-Public Use
  Company Number: SA-SANOFI-AVENTIS-2013SA067734

PATIENT
  Sex: Female

DRUGS (1)
  1. COAPROVEL [Suspect]
     Indication: HYPERTENSION
     Dosage: STRENGTH: 300/12.5
     Route: 048

REACTIONS (1)
  - Product contamination microbial [Unknown]
